FAERS Safety Report 9921027 (Version 3)
Quarter: 2014Q1

REPORT INFORMATION
  Report Type: Spontaneous
  Country: PL (occurrence: PL)
  Receive Date: 20140225
  Receipt Date: 20140318
  Transmission Date: 20141002
  Serious: Yes (Other)
  Sender: FDA-Public Use
  Company Number: PL-ROCHE-1354876

PATIENT
  Age: 37 Year
  Sex: Female
  Weight: 50 kg

DRUGS (5)
  1. ZELBORAF [Suspect]
     Indication: MALIGNANT MELANOMA
     Route: 048
     Dates: start: 20131209, end: 20140219
  2. MST-CONTINUS [Concomitant]
     Indication: PAIN
     Route: 048
     Dates: start: 20131007
  3. SEVREDOL [Concomitant]
     Indication: PAIN
     Route: 048
     Dates: start: 20131007
  4. METOCLOPRAMIDE [Concomitant]
     Indication: NAUSEA
     Route: 048
     Dates: start: 20131007
  5. METOCLOPRAMIDE [Concomitant]
     Indication: VOMITING

REACTIONS (1)
  - Neutropenia [Recovered/Resolved]
